FAERS Safety Report 9144567 (Version 1)
Quarter: 2013Q1

REPORT INFORMATION
  Report Type: Spontaneous
  Country: CO (occurrence: CO)
  Receive Date: 20130306
  Receipt Date: 20130306
  Transmission Date: 20140127
  Serious: Yes (Other)
  Sender: FDA-Public Use
  Company Number: CO-VERTEX PHARMACEUTICALS INC.-2013-003135

PATIENT
  Sex: Male
  Weight: 76 kg

DRUGS (3)
  1. INCIVO [Suspect]
     Indication: HEPATITIS C
     Dosage: 750 MG, TID
     Route: 048
     Dates: start: 20130126
  2. RIBAVIRIN [Concomitant]
     Dosage: 200 MG, TID
     Route: 048
     Dates: start: 20130126
  3. INTERFERON ALFA [Concomitant]
     Dosage: 180 MG, UNK
     Route: 058
     Dates: start: 20130126

REACTIONS (2)
  - Asthenia [Unknown]
  - Nausea [Unknown]
